FAERS Safety Report 7737696-2 (Version None)
Quarter: 2011Q3

REPORT INFORMATION
  Report Type: 
  Country: None (occurrence: None)
  Receive Date: 20110817
  Receipt Date: 20110228
  Transmission Date: 20111222
  Serious: Yes (Hospitalization, Other)
  Sender: FDA-Public Use
  Company Number: 201110067

PATIENT
  Sex: Male

DRUGS (3)
  1. DILAUDID [Concomitant]
  2. FENTANYL-100 [Concomitant]
  3. LIORESAL [Suspect]
     Indication: MUSCLE SPASTICITY
     Dosage: DAILY, INTRATHECAL
     Route: 037

REACTIONS (5)
  - DYSPNOEA [None]
  - CHEST PAIN [None]
  - HYPERHIDROSIS [None]
  - HOSPITALISATION [None]
  - THERAPEUTIC RESPONSE DECREASED [None]
